FAERS Safety Report 5000315-2 (Version None)
Quarter: 2006Q2

REPORT INFORMATION
  Report Type: 
  Country: None (occurrence: None)
  Receive Date: 20060511
  Receipt Date: 20060501
  Transmission Date: 20061013
  Serious: Yes (Hospitalization)
  Sender: FDA-Public Use
  Company Number: US-MERCK-0605USA00510

PATIENT
  Age: 65 Year
  Sex: Female
  Weight: 109 kg

DRUGS (5)
  1. VIOXX [Suspect]
     Route: 048
     Dates: start: 19991201, end: 20010201
  2. CLONIDINE [Concomitant]
     Route: 065
  3. GLUCOPHAGE [Concomitant]
     Route: 065
  4. MECLOFENAMATE SODIUM [Concomitant]
     Route: 065
  5. AMANTADINE HYDROCHLORIDE [Concomitant]
     Route: 065

REACTIONS (1)
  - CEREBROVASCULAR ACCIDENT [None]
